FAERS Safety Report 14930316 (Version 1)
Quarter: 2018Q2

REPORT INFORMATION
  Report Type: Report from Study
  Country: US (occurrence: US)
  Receive Date: 20180523
  Receipt Date: 20180523
  Transmission Date: 20180711
  Serious: No
  Sender: FDA-Public Use
  Company Number: US-THERATECHNOLOGIES, INC.-TH-2018-00269

PATIENT

DRUGS (8)
  1. EGRIFTA [Suspect]
     Active Substance: TESAMORELIN
     Indication: LIPODYSTROPHY ACQUIRED
     Dosage: 1 MG MILLIGRAM(S), DAILY DOSE
     Route: 058
     Dates: start: 20180201
  2. DIAZEPAM. [Concomitant]
     Active Substance: DIAZEPAM
     Dosage: 5 MG MILLIGRAM(S), UNK
     Route: 048
     Dates: start: 20180131
  3. BENAZEPRIL [Concomitant]
     Active Substance: BENAZEPRIL HYDROCHLORIDE
     Dosage: 10 MG MILLIGRAM(S), UNK
     Route: 048
     Dates: start: 20180131
  4. ELIQUIS [Concomitant]
     Active Substance: APIXABAN
     Dosage: 2.5 MG MILLIGRAM(S), UNK
     Route: 048
     Dates: start: 20180131
  5. CLONAZEPAM. [Concomitant]
     Active Substance: CLONAZEPAM
     Dosage: 0.5 MG MILLIGRAM(S), UNK
     Route: 048
     Dates: start: 20180131
  6. AMLODIPINE [Concomitant]
     Active Substance: AMLODIPINE BESYLATE
     Dosage: 5 MG MILLIGRAM(S), UNK
     Route: 048
     Dates: start: 20180131
  7. FINASTERIDE. [Concomitant]
     Active Substance: FINASTERIDE
     Dosage: 5 MG MILLIGRAM(S), UNK
     Dates: start: 20180131
  8. ATORVASTATIN [Concomitant]
     Active Substance: ATORVASTATIN
     Dosage: 20 MG MILLIGRAM(S), UNK
     Route: 048
     Dates: start: 20180131

REACTIONS (2)
  - Skin hypertrophy [Not Recovered/Not Resolved]
  - Depression [Not Recovered/Not Resolved]
